FAERS Safety Report 4788748-0 (Version None)
Quarter: 2005Q4

REPORT INFORMATION
  Report Type: 
  Country: None (occurrence: None)
  Receive Date: 20051003
  Receipt Date: 20040811
  Transmission Date: 20060501
  Serious: Yes (Hospitalization)
  Sender: FDA-Public Use
  Company Number: US-JNJFOC-20040803427

PATIENT
  Age: 41 Year
  Sex: Female

DRUGS (6)
  1. CONCERTA [Suspect]
     Indication: BIPOLAR DISORDER
     Dosage: ORAL
     Route: 048
     Dates: end: 20040611
  2. CONCERTA [Suspect]
     Indication: BIPOLAR DISORDER
     Dosage: ORAL
     Route: 048
     Dates: start: 20040101
  3. MICARDIS HCT [Suspect]
     Dosage: ORAL
     Route: 048
     Dates: start: 20040611, end: 20040618
  4. ZYPREXA [Suspect]
     Indication: DEPRESSION
     Dosage: ORAL
     Route: 048
     Dates: end: 20040610
  5. ZYPREXA [Suspect]
     Indication: DEPRESSION
     Dosage: ORAL
     Route: 048
     Dates: start: 20040101
  6. GLUCOPHAGE [Concomitant]

REACTIONS (2)
  - BIPOLAR DISORDER [None]
  - MANIA [None]
